FAERS Safety Report 18954205 (Version 1)
Quarter: 2021Q1

REPORT INFORMATION
  Report Type: Spontaneous
  Country: US (occurrence: US)
  Receive Date: 20210301
  Receipt Date: 20210301
  Transmission Date: 20210420
  Serious: Yes (Other)
  Sender: FDA-Public Use
  Company Number: US-CURIUM-1991000097

PATIENT
  Age: 26 Year
  Sex: Female

DRUGS (1)
  1. TECHNESCAN HDP [Suspect]
     Active Substance: TECHNETIUM TC-99M OXIDRONATE
     Indication: BONE SCAN
     Route: 051

REACTIONS (3)
  - Cellulitis [Unknown]
  - Phlebitis [Unknown]
  - Injection site extravasation [Unknown]

NARRATIVE: CASE EVENT DATE: 19910408
